FAERS Safety Report 8904356 (Version 3)
Quarter: 2013Q1

REPORT INFORMATION
  Report Type: Report from Study
  Country: BR (occurrence: BR)
  Receive Date: 20121113
  Receipt Date: 20130130
  Transmission Date: 20140127
  Serious: Yes (Other)
  Sender: FDA-Public Use
  Company Number: BR-US-EMD SERONO, INC.-7173160

PATIENT
  Age: 32 Year
  Sex: Male

DRUGS (7)
  1. REBIF [Suspect]
     Indication: MULTIPLE SCLEROSIS
     Dates: start: 20111024
  2. SOLUMEDROL [Suspect]
     Indication: PRODUCT USED FOR UNKNOWN INDICATION
  3. PARACETAMOL [Concomitant]
     Indication: PREMEDICATION
  4. ZOLPIDEM [Concomitant]
     Indication: PRODUCT USED FOR UNKNOWN INDICATION
  5. PHYTOMEDICINES [Concomitant]
     Indication: PRODUCT USED FOR UNKNOWN INDICATION
  6. ACICLOVIR [Concomitant]
     Indication: MUSCLE CONTRACTIONS INVOLUNTARY
     Route: 048
  7. CORTICOIDS [Concomitant]
     Indication: DIPLOPIA
     Route: 048

REACTIONS (3)
  - Glaucoma [Unknown]
  - Cataract [Unknown]
  - Multiple sclerosis relapse [Unknown]
